FAERS Safety Report 8817452 (Version 2)
Quarter: 2012Q4

REPORT INFORMATION
  Report Type: 
  Country: CA (occurrence: CA)
  Receive Date: 20121002
  Receipt Date: 20121126
  Transmission Date: 20130627
  Serious: Yes (Other)
  Sender: FDA-Public Use
  Company Number: CA-ELI_LILLY_AND_COMPANY-CA201110008268

PATIENT
  Age: 81 Year
  Sex: Female
  Weight: 69.84 kg

DRUGS (9)
  1. FORTEO [Suspect]
     Indication: OSTEOPOROSIS
     Dosage: 20 ug, qd
     Route: 058
     Dates: start: 20110627
  2. FORTEO [Suspect]
     Dosage: 20 ug, qd
     Route: 058
  3. VENTOLIN                                /SCH/ [Concomitant]
  4. FLOVENT [Concomitant]
  5. SYNTHROID [Concomitant]
  6. CALCIUM [Concomitant]
  7. VITAMIN D NOS [Concomitant]
  8. MEMANTINE [Concomitant]
  9. XALATAN [Concomitant]

REACTIONS (8)
  - Deep vein thrombosis [Unknown]
  - Breast pain [Recovered/Resolved]
  - Back pain [Not Recovered/Not Resolved]
  - Pain in extremity [Not Recovered/Not Resolved]
  - Arthralgia [Not Recovered/Not Resolved]
  - Joint swelling [Not Recovered/Not Resolved]
  - Muscular weakness [Not Recovered/Not Resolved]
  - Breast tenderness [Unknown]
